FAERS Safety Report 7204150-6 (Version None)
Quarter: 2010Q4

REPORT INFORMATION
  Report Type: 
  Country: None (occurrence: None)
  Receive Date: 20101230
  Receipt Date: 20101221
  Transmission Date: 20110411
  Serious: Yes (Other)
  Sender: FDA-Public Use
  Company Number: US-TEVA-260679USA

PATIENT

DRUGS (1)
  1. BISOPROLOL FUMARATE [Suspect]

REACTIONS (4)
  - ACUTE PULMONARY OEDEMA [None]
  - CARDIOGENIC SHOCK [None]
  - MITRAL VALVE INCOMPETENCE [None]
  - THROMBOSIS IN DEVICE [None]
